FAERS Safety Report 5192200-0 (Version None)
Quarter: 2006Q4

REPORT INFORMATION
  Report Type: 
  Country: None (occurrence: None)
  Receive Date: 20061220
  Receipt Date: 20061208
  Transmission Date: 20070319
  Serious: Yes (Death, Hospitalization)
  Sender: FDA-Public Use
  Company Number: 2006149743

PATIENT

DRUGS (3)
  1. TOLTERODINE TARTRATE [Suspect]
     Indication: BLADDER DISORDER
     Dosage: 4 MG (4 MG, 1 IN 1 D), ORAL
     Route: 048
     Dates: start: 20060801, end: 20060101
  2. ALL OTHER THERAPEUTIC PRODUCTS [Concomitant]
  3. ANTIINFLAMMATORY/ANTIRHEUMATIC PRODUCTS [Concomitant]

REACTIONS (8)
  - ANOREXIA [None]
  - ASTHENIA [None]
  - CARDIAC FAILURE [None]
  - COMA [None]
  - LOSS OF CONSCIOUSNESS [None]
  - PAIN IN EXTREMITY [None]
  - VIRAL INFECTION [None]
  - VOMITING [None]
